FAERS Safety Report 9463989 (Version 1)
Quarter: 2013Q3

REPORT INFORMATION
  Report Type: Spontaneous
  Country: US (occurrence: US)
  Receive Date: 20130819
  Receipt Date: 20130819
  Transmission Date: 20140515
  Serious: No
  Sender: FDA-Public Use
  Company Number: US-BRISTOL-MYERS SQUIBB COMPANY-17208851

PATIENT
  Age: 58 Year
  Sex: Male

DRUGS (11)
  1. REYATAZ [Suspect]
  2. TRUVADA [Concomitant]
  3. ISENTRESS [Concomitant]
  4. NORVIR [Concomitant]
  5. PROTONIX [Concomitant]
  6. SIMVASTATIN [Concomitant]
  7. CITALOPRAM [Concomitant]
  8. MEGACE [Concomitant]
  9. HYDROCODONE [Concomitant]
  10. ALPRAZOLAM [Concomitant]
  11. PERCOCET [Concomitant]

REACTIONS (4)
  - Decreased appetite [Unknown]
  - Vertigo [Unknown]
  - Fatigue [Unknown]
  - Memory impairment [Unknown]
